FAERS Safety Report 7783066-0 (Version None)
Quarter: 2011Q3

REPORT INFORMATION
  Report Type: 
  Country: None (occurrence: None)
  Receive Date: 20110928
  Receipt Date: 20110923
  Transmission Date: 20111222
  Serious: No
  Sender: FDA-Public Use
  Company Number: US-PFIZER INC-2011227339

PATIENT
  Sex: Male
  Weight: 97.5 kg

DRUGS (1)
  1. DILANTIN-125 [Suspect]
     Indication: CONVULSION
     Dosage: UNK
     Route: 048

REACTIONS (3)
  - ERYTHEMA [None]
  - RASH [None]
  - RASH ERYTHEMATOUS [None]
